FAERS Safety Report 16480969 (Version 1)
Quarter: 2019Q2

REPORT INFORMATION
  Report Type: Spontaneous
  Country: DK (occurrence: DK)
  Receive Date: 20190626
  Receipt Date: 20190626
  Transmission Date: 20190711
  Serious: Yes (Hospitalization, Other)
  Sender: FDA-Public Use
  Company Number: DK-ENDO PHARMACEUTICALS INC-2019-105779

PATIENT
  Age: 42 Year
  Sex: Male
  Weight: 90 kg

DRUGS (2)
  1. ENALAPRIL [Suspect]
     Active Substance: ENALAPRIL
     Indication: PRODUCT USED FOR UNKNOWN INDICATION
     Dosage: 1 G, UNK
     Route: 065
  2. VERAPAMIL HYDROCHLORIDE. [Suspect]
     Active Substance: VERAPAMIL HYDROCHLORIDE
     Indication: PRODUCT USED FOR UNKNOWN INDICATION
     Dosage: 12 G, UNKNOWN
     Route: 065

REACTIONS (7)
  - Respiratory failure [Unknown]
  - Suicide attempt [Unknown]
  - Bezoar [Unknown]
  - Atrioventricular block complete [Unknown]
  - Intentional overdose [Unknown]
  - Anuria [Unknown]
  - Pulmonary oedema [Unknown]
